FAERS Safety Report 5569531-5 (Version None)
Quarter: 2007Q4

REPORT INFORMATION
  Report Type: 
  Country: None (occurrence: None)
  Receive Date: 20071220
  Receipt Date: 20071210
  Transmission Date: 20080405
  Serious: Yes (Hospitalization)
  Sender: FDA-Public Use
  Company Number: DE-GILEAD-2007-0014558

PATIENT
  Sex: Male
  Weight: 77 kg

DRUGS (5)
  1. TRUVADA [Suspect]
     Indication: HIV INFECTION
     Route: 048
     Dates: start: 20071128, end: 20071204
  2. COTRIM [Concomitant]
     Indication: PROPHYLAXIS
     Route: 048
     Dates: start: 20071128
  3. PANTAZOL [Concomitant]
     Route: 048
     Dates: start: 20071127
  4. TELZIR [Concomitant]
     Dates: start: 20071128
  5. NORVIR [Concomitant]
     Route: 048
     Dates: start: 20071128

REACTIONS (3)
  - BLOOD CREATININE INCREASED [None]
  - BLOOD URIC ACID INCREASED [None]
  - GLOMERULAR FILTRATION RATE DECREASED [None]
